FAERS Safety Report 12408936 (Version 2)
Quarter: 2016Q2

REPORT INFORMATION
  Report Type: Spontaneous
  Country: JP (occurrence: JP)
  Receive Date: 20160526
  Receipt Date: 20160624
  Transmission Date: 20160815
  Serious: Yes (Hospitalization)
  Sender: FDA-Public Use
  Company Number: JP-MYLANLABS-2016M1021353

PATIENT

DRUGS (2)
  1. LISINOPRIL. [Suspect]
     Active Substance: LISINOPRIL
     Indication: IGA NEPHROPATHY
     Dosage: 20 MG, QD
     Route: 048
  2. DIPYRIDAMOLE. [Suspect]
     Active Substance: DIPYRIDAMOLE
     Indication: IGA NEPHROPATHY
     Route: 048

REACTIONS (1)
  - Acute kidney injury [Recovering/Resolving]
